FAERS Safety Report 4430257-2 (Version None)
Quarter: 2004Q3

REPORT INFORMATION
  Report Type: 
  Country: None (occurrence: None)
  Receive Date: 20040820
  Receipt Date: 20040810
  Transmission Date: 20050211
  Serious: Yes (Hospitalization)
  Sender: FDA-Public Use
  Company Number: FR-GLAXOSMITHKLINE-B0341976A

PATIENT
  Age: 33 Year
  Sex: Male

DRUGS (12)
  1. ZANTAC [Suspect]
     Route: 042
     Dates: start: 20040706, end: 20040711
  2. TRACRIUM [Suspect]
     Indication: GENERAL ANAESTHESIA
     Dosage: 50MG SINGLE DOSE
     Route: 042
     Dates: start: 20040708, end: 20040708
  3. MIDAZOLAM [Suspect]
     Route: 042
  4. PROPOFOL [Suspect]
     Route: 042
     Dates: start: 20040707
  5. SEVORANE [Suspect]
     Indication: GENERAL ANAESTHESIA
     Route: 055
     Dates: start: 20040708, end: 20040708
  6. SUFENTA [Suspect]
     Route: 042
     Dates: start: 20040706
  7. NIMBEX [Concomitant]
     Route: 042
     Dates: start: 20040706
  8. SUCCINYLCHOLINE CHLORIDE [Concomitant]
     Dosage: 70MG SINGLE DOSE
     Route: 042
     Dates: start: 20040706, end: 20040706
  9. AUGMENTIN '125' [Concomitant]
     Dosage: 1G PER DAY
     Route: 042
     Dates: start: 20040708
  10. CEFAZOLIN [Concomitant]
     Dosage: 2G PER DAY
     Route: 042
     Dates: start: 20040706, end: 20040706
  11. NICARDIPINE HCL [Concomitant]
     Dosage: 1MGH PER DAY
     Route: 042
     Dates: start: 20040706, end: 20040707
  12. VITAMIN B1 + VIT B6 + VIT B12 [Concomitant]
     Route: 042
     Dates: start: 20040707

REACTIONS (8)
  - ANAESTHETIC COMPLICATION [None]
  - ASCITES [None]
  - ECHOENCEPHALOGRAM ABNORMAL [None]
  - GRAND MAL CONVULSION [None]
  - LIVER DISORDER [None]
  - LUNG DISORDER [None]
  - TONIC CLONIC MOVEMENTS [None]
  - TREMOR [None]
